FAERS Safety Report 6173753-2 (Version None)
Quarter: 2009Q2

REPORT INFORMATION
  Report Type: 
  Country: None (occurrence: None)
  Receive Date: 20090430
  Receipt Date: 20090430
  Transmission Date: 20091009
  Serious: Yes (Death)
  Sender: FDA-Public Use
  Company Number: PHHY2009AU16273

PATIENT
  Sex: Female

DRUGS (5)
  1. CLOZARIL [Suspect]
     Dosage: 25 MG, UNK
     Dates: start: 20090202
  2. CLOZARIL [Suspect]
     Dosage: 150 MG, UNK
     Dates: start: 20090210
  3. CLOZARIL [Suspect]
     Dosage: 325 MG, UNK
     Dates: start: 20090217
  4. CLOZARIL [Suspect]
     Dosage: 400 MG, UNK
     Dates: start: 20090224
  5. CLOZARIL [Suspect]
     Dosage: 350 MG, UNK
     Dates: start: 20090304

REACTIONS (1)
  - DEATH [None]
